FAERS Safety Report 22639455 (Version 1)
Quarter: 2023Q2

REPORT INFORMATION
  Report Type: Spontaneous
  Country: DE (occurrence: DE)
  Receive Date: 20230626
  Receipt Date: 20230626
  Transmission Date: 20230721
  Serious: Yes (Hospitalization, Other)
  Sender: FDA-Public Use
  Company Number: DE-PURACAP-DE-2023EPCLIT01067

PATIENT
  Age: 16 Year
  Sex: Female
  Weight: 112 kg

DRUGS (1)
  1. IBUPROFEN [Suspect]
     Active Substance: IBUPROFEN
     Indication: Dysmenorrhoea
     Dosage: TAKEN 12-14 TABLETS OF IBUPROFEN
     Route: 065

REACTIONS (3)
  - Acute kidney injury [Recovered/Resolved]
  - Overdose [Unknown]
  - Intentional product misuse [Unknown]
